FAERS Safety Report 5349651-0 (Version None)
Quarter: 2007Q2

REPORT INFORMATION
  Report Type: 
  Country: None (occurrence: None)
  Receive Date: 20070607
  Receipt Date: 20070531
  Transmission Date: 20071010
  Serious: Yes (Other)
  Sender: FDA-Public Use
  Company Number: DE-ALLERGAN-0605005US

PATIENT
  Sex: Female

DRUGS (1)
  1. INFLANEGENT LIQUIFILM [Suspect]
     Indication: BLEPHARITIS
     Route: 047
     Dates: start: 20060829, end: 20060912

REACTIONS (3)
  - ABORTION SPONTANEOUS [None]
  - PREGNANCY [None]
  - VIRAL INFECTION [None]
